FAERS Safety Report 4767354-8 (Version None)
Quarter: 2005Q3

REPORT INFORMATION
  Report Type: 
  Country: None (occurrence: None)
  Receive Date: 20050909
  Receipt Date: 20050907
  Transmission Date: 20060218
  Serious: Yes (Other)
  Sender: FDA-Public Use
  Company Number: 200511175BWH

PATIENT
  Age: 38 Year
  Sex: Male

DRUGS (4)
  1. TRASYLOL [Suspect]
     Indication: HEART VALVE REPLACEMENT
     Dates: start: 20050501
  2. PROTAMINE [Concomitant]
  3. CRYOSUPERNATE [Concomitant]
  4. PLATELETS [Concomitant]

REACTIONS (3)
  - CARDIAC FUNCTION DISTURBANCE POSTOPERATIVE [None]
  - CARDIAC VALVE REPLACEMENT COMPLICATION [None]
  - INTRACARDIAC THROMBUS [None]
